FAERS Safety Report 18927924 (Version 1)
Quarter: 2021Q1

REPORT INFORMATION
  Report Type: Spontaneous
  Country: US (occurrence: US)
  Receive Date: 20210223
  Receipt Date: 20210223
  Transmission Date: 20210420
  Serious: Yes (Death, Hospitalization, Other)
  Sender: FDA-Public Use
  Company Number: US-ADAMAS PHARMA, LLC-2021ADA00310

PATIENT
  Age: 72 Year
  Sex: Male
  Weight: 68 kg

DRUGS (11)
  1. GOCOVRI [Suspect]
     Active Substance: AMANTADINE
     Indication: TARDIVE DYSKINESIA
  2. PLAVIX [Concomitant]
     Active Substance: CLOPIDOGREL BISULFATE
     Dosage: 75 MG, 1X/DAY
  3. VALERIAN [Concomitant]
     Active Substance: VALERIAN
     Dosage: UNK, 1X/DAY
  4. VITAMIN C [Concomitant]
     Active Substance: ASCORBIC ACID
  5. MELATONIN [Concomitant]
     Active Substance: MELATONIN
     Dosage: 3 MG, 1X/DAY AT NIGHT
  6. SAW PALMETTO [Concomitant]
     Active Substance: HERBALS\SAW PALMETTO
     Dosage: 1 TABLETS
     Route: 048
  7. GOCOVRI [Suspect]
     Active Substance: AMANTADINE
     Indication: PARKINSON^S DISEASE
     Dosage: 137 MG, 1X/DAY, AT NIGHT
     Route: 048
     Dates: start: 20201218
  8. CARBIDOPA/LEVODOPA [Concomitant]
     Active Substance: CARBIDOPA\LEVODOPA
     Dosage: 2 TABLETS, 4X/DAY
  9. ST. JOHN^S WORT [Concomitant]
     Active Substance: ST. JOHN^S WORT
  10. VESICARE [Concomitant]
     Active Substance: SOLIFENACIN SUCCINATE
     Dosage: 5 MG, 1X/DAY
     Dates: start: 20201218
  11. METOPROLOL XL [Concomitant]
     Active Substance: METOPROLOL SUCCINATE
     Dosage: 25 MG, 1X/DAY

REACTIONS (5)
  - Renal failure [Fatal]
  - Fall [Unknown]
  - Hospitalisation [Unknown]
  - General physical health deterioration [Unknown]
  - Disorientation [Unknown]

NARRATIVE: CASE EVENT DATE: 20210116
